FAERS Safety Report 6183446-3 (Version None)
Quarter: 2009Q2

REPORT INFORMATION
  Report Type: 
  Country: None (occurrence: None)
  Receive Date: 20090506
  Receipt Date: 20090504
  Transmission Date: 20091009
  Serious: Yes (Life-Threatening, Hospitalization, Disabling)
  Sender: FDA-Public Use
  Company Number: SP02359

PATIENT
  Age: 54 Year
  Sex: Female
  Weight: 56.6996 kg

DRUGS (9)
  1. OSMOPREP [Suspect]
     Indication: COLONOSCOPY
     Dosage: ORAL
     Route: 048
     Dates: start: 20090401
  2. LYRICA [Concomitant]
  3. LEXAPRO [Concomitant]
  4. LAMISIL [Concomitant]
  5. PIROXICAM [Concomitant]
  6. CALCIUM [Concomitant]
  7. MAGENSIUM [Concomitant]
  8. FISH OIL [Concomitant]
  9. VITAMIN K [Concomitant]

REACTIONS (12)
  - BLOOD ELECTROLYTES ABNORMAL [None]
  - FLUID OVERLOAD [None]
  - HYPERPHOSPHATAEMIA [None]
  - HYPOAESTHESIA [None]
  - HYPOAESTHESIA FACIAL [None]
  - HYPOVOLAEMIA [None]
  - NEPHROPATHY [None]
  - RENAL FAILURE ACUTE [None]
  - RHABDOMYOLYSIS [None]
  - SOMNOLENCE [None]
  - TETANY [None]
  - URINARY TRACT INFECTION [None]
